FAERS Safety Report 15340631 (Version 1)
Quarter: 2018Q3

REPORT INFORMATION
  Report Type: Report from Study
  Country: EG (occurrence: EG)
  Receive Date: 20180831
  Receipt Date: 20180831
  Transmission Date: 20181010
  Serious: Yes (Other)
  Sender: FDA-Public Use
  Company Number: EG-SAKK-2018SA229648AA

PATIENT
  Age: 66 Year
  Sex: Male

DRUGS (3)
  1. GLUCOPHAGE [Concomitant]
     Active Substance: METFORMIN HYDROCHLORIDE
  2. INSULIN GLARGINE [Suspect]
     Active Substance: INSULIN GLARGINE
     Indication: TYPE 2 DIABETES MELLITUS
     Dosage: 20 IU, QD
     Route: 058
     Dates: start: 2014
  3. APIDRA [Suspect]
     Active Substance: INSULIN GLULISINE
     Dosage: 10 IU, BID

REACTIONS (4)
  - Incorrect dose administered by device [Unknown]
  - Lung neoplasm malignant [Not Recovered/Not Resolved]
  - Expired device used [Unknown]
  - Blood glucose increased [Not Recovered/Not Resolved]

NARRATIVE: CASE EVENT DATE: 201802
